FAERS Safety Report 7622110-8 (Version None)
Quarter: 2011Q3

REPORT INFORMATION
  Report Type: 
  Country: None (occurrence: None)
  Receive Date: 20110720
  Receipt Date: 20110321
  Transmission Date: 20111222
  Serious: Yes (Hospitalization, Other)
  Sender: FDA-Public Use
  Company Number: US-BAYER-2011-000425

PATIENT
  Age: 40 Year
  Sex: Female
  Weight: 69.841 kg

DRUGS (8)
  1. AMLODIPINE [Concomitant]
  2. YAZ [Suspect]
     Indication: ACNE
  3. HYDROCHLOROTHIAZIDE [Concomitant]
     Dosage: UNK
     Dates: start: 19890101
  4. ACETAMINOPHEN [Concomitant]
  5. ANTIBIOTICS [Concomitant]
     Dosage: UNK UNK, PRN
  6. DROSPIRENONE AND ETHINYL ESTRADIOL [Suspect]
     Indication: ACNE
     Dosage: UNK
     Route: 048
     Dates: start: 20050201, end: 20100301
  7. YASMIN [Suspect]
     Indication: ACNE
     Dosage: UNK
     Route: 048
     Dates: start: 20050201, end: 20100301
  8. ATENOLOL [Concomitant]
     Dosage: UNK
     Dates: start: 19890101

REACTIONS (5)
  - INJURY [None]
  - CEREBRAL ARTERY OCCLUSION [None]
  - CEREBROVASCULAR ACCIDENT [None]
  - THALAMIC INFARCTION [None]
  - PAIN [None]
